FAERS Safety Report 18483474 (Version 1)
Quarter: 2020Q4

REPORT INFORMATION
  Report Type: Spontaneous
  Country: US (occurrence: US)
  Receive Date: 20201109
  Receipt Date: 20201109
  Transmission Date: 20210114
  Serious: No
  Sender: FDA-Public Use
  Company Number: US-ROCHE-2645297

PATIENT
  Sex: Male
  Weight: 72.64 kg

DRUGS (6)
  1. PULMOZYME [Suspect]
     Active Substance: DORNASE ALFA
     Indication: CYSTIC FIBROSIS
     Dosage: INHALE 2.5M ML VIA NEBULIZER, SOLUTION (NEBULIZER); DOSE: 1 MG/ML
     Route: 045
     Dates: start: 20180713
  2. VITAMIN D [Concomitant]
     Active Substance: VITAMIN D NOS
     Route: 048
     Dates: start: 20180712
  3. ALBUTEROL. [Concomitant]
     Active Substance: ALBUTEROL
     Route: 048
     Dates: start: 20180712
  4. PULMOZYME [Suspect]
     Active Substance: DORNASE ALFA
     Indication: LUNG DISORDER
  5. RANITIDINE. [Concomitant]
     Active Substance: RANITIDINE
     Route: 048
     Dates: start: 20180712
  6. KALYDECO [Concomitant]
     Active Substance: IVACAFTOR
     Route: 048
     Dates: start: 20180712

REACTIONS (2)
  - No adverse event [Unknown]
  - Product dose omission issue [Unknown]
